FAERS Safety Report 6427097-1 (Version None)
Quarter: 2009Q4

REPORT INFORMATION
  Report Type: 
  Country: None (occurrence: None)
  Receive Date: 20091104
  Receipt Date: 20091023
  Transmission Date: 20100525
  Serious: Yes (Hospitalization)
  Sender: FDA-Public Use
  Company Number: US-ELI_LILLY_AND_COMPANY-US200910007380

PATIENT
  Sex: Male

DRUGS (4)
  1. STRATTERA [Suspect]
     Dosage: 60 MG, UNKNOWN
     Route: 065
  2. STRATTERA [Suspect]
     Dosage: UNK, UNKNOWN
     Route: 065
     Dates: start: 20090501
  3. TRAZODONE HCL [Concomitant]
     Indication: SLEEP DISORDER
     Dosage: 25 MG, UNKNOWN
     Route: 065
  4. SEROQUEL [Concomitant]
     Indication: SLEEP DISORDER
     Dosage: 300 MG, UNKNOWN
     Route: 065

REACTIONS (2)
  - DRUG WITHDRAWAL SYNDROME [None]
  - PANIC ATTACK [None]
